FAERS Safety Report 23737312 (Version 1)
Quarter: 2024Q2

REPORT INFORMATION
  Report Type: Spontaneous
  Country: US (occurrence: None)
  Receive Date: 20240411
  Receipt Date: 20240411
  Transmission Date: 20240716
  Serious: Yes (Life-Threatening)
  Sender: FDA-Public Use
  Company Number: None

PATIENT
  Age: 26 Year
  Sex: Male
  Weight: 58 kg

DRUGS (1)
  1. INFED [Suspect]
     Active Substance: IRON DEXTRAN
     Indication: Iron deficiency
     Dosage: FREQUENCY : ONCE;?
     Route: 042

REACTIONS (5)
  - Chest pain [None]
  - Dyspnoea [None]
  - Infusion related reaction [None]
  - Oxygen saturation decreased [None]
  - Ocular hyperaemia [None]

NARRATIVE: CASE EVENT DATE: 20240330
